FAERS Safety Report 20311724 (Version 2)
Quarter: 2022Q1

REPORT INFORMATION
  Report Type: Other
  Country: US (occurrence: None)
  Receive Date: 20220108
  Receipt Date: 20220113
  Transmission Date: 20220423
  Serious: No
  Sender: FDA-Public Use
  Company Number: US-ROCHE-2996448

PATIENT
  Age: 31 Year
  Sex: Female
  Weight: 56.750 kg

DRUGS (2)
  1. OCREVUS [Suspect]
     Active Substance: OCRELIZUMAB
     Indication: Relapsing multiple sclerosis
     Dosage: DATE OF TREATMENT: 20/JUL/2021, 02/FEB/2021, 15/AUG/2020, 27/FEB/2020, 13/FEB/2020
     Route: 042
     Dates: start: 202002
  2. MODERNA COVID-19 VACCINE [Suspect]
     Active Substance: ELASOMERAN
     Indication: Product used for unknown indication
     Dosage: SECOND DOSE: /APR/2021, THIRD DOSE: 09/NOV/2021.
     Route: 065
     Dates: start: 202104

REACTIONS (1)
  - COVID-19 [Recovering/Resolving]

NARRATIVE: CASE EVENT DATE: 20211231
